FAERS Safety Report 8723402 (Version 3)
Quarter: 2012Q4

REPORT INFORMATION
  Report Type: 
  Country: CA (occurrence: CA)
  Receive Date: 20120814
  Receipt Date: 20121017
  Transmission Date: 20130627
  Serious: Yes (Other)
  Sender: FDA-Public Use
  Company Number: CA-PFIZER INC-2012197325

PATIENT
  Age: 62 Year
  Sex: Male
  Weight: 72.56 kg

DRUGS (3)
  1. CHAMPIX [Suspect]
     Indication: SMOKING CESSATION THERAPY
     Dosage: 1 mg, 2x/day
     Dates: start: 201204, end: 2012
  2. CHAMPIX [Suspect]
     Dosage: 0.5 mg, 2x/day
     Dates: start: 2012, end: 2012
  3. CHAMPIX [Suspect]
     Dosage: 1 mg, 2x/day
     Dates: start: 2012, end: 2012

REACTIONS (3)
  - Depression [Recovered/Resolved]
  - Negative thoughts [Recovered/Resolved]
  - Anxiety [Recovered/Resolved]
